FAERS Safety Report 21594622 (Version 2)
Quarter: 2022Q4

REPORT INFORMATION
  Report Type: Report from Study
  Country: US (occurrence: US)
  Receive Date: 20221115
  Receipt Date: 20221214
  Transmission Date: 20230112
  Serious: No
  Sender: FDA-Public Use
  Company Number: US-ABBVIE-22K-163-4533310-00

PATIENT
  Sex: Female

DRUGS (4)
  1. HUMIRA [Suspect]
     Active Substance: ADALIMUMAB
     Indication: Rheumatoid arthritis
     Dosage: FORM STRENGTH 40MG
     Route: 058
  2. HUMIRA [Suspect]
     Active Substance: ADALIMUMAB
     Route: 058
  3. LEFLUNOMIDE [Concomitant]
     Active Substance: LEFLUNOMIDE
     Indication: Product used for unknown indication
  4. PFIZER-BIONTECH COVID-19 VACCINE [Concomitant]
     Active Substance: TOZINAMERAN
     Indication: COVID-19 immunisation
     Dosage: ONE IN ONCE FREQUENCY
     Route: 030

REACTIONS (23)
  - Joint lock [Not Recovered/Not Resolved]
  - Device colour issue [Unknown]
  - Joint swelling [Unknown]
  - Anxiety [Unknown]
  - Grip strength decreased [Unknown]
  - Musculoskeletal stiffness [Unknown]
  - Fibromyalgia [Unknown]
  - Therapeutic product effect decreased [Unknown]
  - Arthralgia [Unknown]
  - Pain in extremity [Not Recovered/Not Resolved]
  - Drug interaction [Unknown]
  - Musculoskeletal stiffness [Unknown]
  - Dupuytren^s contracture [Unknown]
  - Hypertension [Unknown]
  - Meniere^s disease [Unknown]
  - Vertigo [Unknown]
  - Glucose tolerance impaired [Unknown]
  - Sinusitis [Unknown]
  - Fungal oesophagitis [Unknown]
  - Anaemia [Unknown]
  - Plantar fasciitis [Unknown]
  - Nodule [Unknown]
  - Pain in extremity [Unknown]
